FAERS Safety Report 6819737-X (Version None)
Quarter: 2010Q3

REPORT INFORMATION
  Report Type: 
  Country: None (occurrence: None)
  Receive Date: 20100707
  Receipt Date: 20100628
  Transmission Date: 20110219
  Serious: Yes (Death, Other)
  Sender: FDA-Public Use
  Company Number: US-JNJFOC-20100502803

PATIENT
  Sex: Female

DRUGS (6)
  1. REMICADE [Suspect]
     Indication: PSORIATIC ARTHROPATHY
     Route: 042
  2. SYNTHROID [Concomitant]
  3. PAXIL [Concomitant]
     Indication: DEPRESSION
  4. AMLODIPINE [Concomitant]
     Indication: HYPERTENSION
  5. PLAQUENIL [Concomitant]
  6. HYDROCHLOROTHIAZIDE [Concomitant]

REACTIONS (3)
  - DEATH [None]
  - DRUG EFFECT DECREASED [None]
  - HEPATOTOXICITY [None]
